FAERS Safety Report 5664102-4 (Version None)
Quarter: 2008Q1

REPORT INFORMATION
  Report Type: 
  Country: None (occurrence: None)
  Receive Date: 20080314
  Receipt Date: 20080305
  Transmission Date: 20080703
  Serious: Yes (Other)
  Sender: FDA-Public Use
  Company Number: DE-JNJFOC-20080301549

PATIENT
  Age: 34 Year
  Sex: Female

DRUGS (11)
  1. IONSYS [Suspect]
     Indication: ARTHRODESIS
     Route: 044
  2. IONSYS [Suspect]
     Indication: PAIN
     Route: 044
  3. CONCOR 5 [Concomitant]
     Route: 065
  4. NOVALGIN [Concomitant]
     Route: 065
  5. DEXAMETHASONE [Concomitant]
     Route: 065
  6. RANTUDIL [Concomitant]
     Route: 065
  7. MUSARIL [Concomitant]
     Route: 065
  8. FOLSAN [Concomitant]
     Route: 065
  9. MOVICOL [Concomitant]
     Route: 066
  10. AMITRIPTYLINE HCL [Concomitant]
     Route: 065
  11. BENZALKONIUM CHLORIDE [Concomitant]
     Route: 065

REACTIONS (3)
  - APPLICATION SITE ERYTHEMA [None]
  - APPLICATION SITE REACTION [None]
  - APPLICATION SITE VESICLES [None]
